FAERS Safety Report 5199638-6 (Version None)
Quarter: 2007Q1

REPORT INFORMATION
  Report Type: 
  Country: None (occurrence: None)
  Receive Date: 20070103
  Receipt Date: 20070103
  Transmission Date: 20070707
  Serious: Yes (Other)
  Sender: FDA-Public Use
  Company Number: None

PATIENT
  Sex: Female
  Weight: 77.1115 kg

DRUGS (7)
  1. HUMIRA [Suspect]
     Indication: RHEUMATOID ARTHRITIS
     Dosage: 40MG  QOW  SQ
     Route: 058
     Dates: start: 20050901, end: 20060801
  2. MEDROL [Concomitant]
  3. FOSAMAX [Concomitant]
  4. TREXALL [Concomitant]
  5. FOLIC ACID [Concomitant]
  6. AZULFIDINE [Concomitant]
  7. MOBIC [Concomitant]

REACTIONS (1)
  - LUNG NEOPLASM MALIGNANT [None]
